FAERS Safety Report 14621710 (Version 2)
Quarter: 2018Q4

REPORT INFORMATION
  Report Type: Spontaneous
  Country: FR (occurrence: FR)
  Receive Date: 20180310
  Receipt Date: 20181105
  Transmission Date: 20190204
  Serious: Yes (Hospitalization)
  Sender: FDA-Public Use
  Company Number: FR-AUROBINDO-AUR-APL-2018-012805

PATIENT
  Age: 69 Year
  Sex: Female

DRUGS (4)
  1. TRAMADOL. [Suspect]
     Active Substance: TRAMADOL
     Indication: PAIN
     Dosage: UNK
     Route: 042
     Dates: end: 20161101
  2. TRAMADOL. [Suspect]
     Active Substance: TRAMADOL
     Dosage: UNK,NP
     Route: 042
     Dates: start: 20161117, end: 20161117
  3. KETOPROFEN. [Suspect]
     Active Substance: KETOPROFEN
     Dosage: NP
     Route: 042
     Dates: start: 20161117, end: 20161117
  4. KETOPROFEN. [Suspect]
     Active Substance: KETOPROFEN
     Indication: PAIN
     Dosage: UNK
     Route: 042
     Dates: end: 20161101

REACTIONS (3)
  - Urticaria [Recovered/Resolved]
  - Pruritus [Recovered/Resolved]
  - Oedema [Recovered/Resolved]

NARRATIVE: CASE EVENT DATE: 20161117
